FAERS Safety Report 20199493 (Version 3)
Quarter: 2022Q1

REPORT INFORMATION
  Report Type: Spontaneous
  Country: JP (occurrence: JP)
  Receive Date: 20211217
  Receipt Date: 20220315
  Transmission Date: 20220423
  Serious: Yes (Hospitalization, Other)
  Sender: FDA-Public Use
  Company Number: JP-ONO-2021JP031606

PATIENT

DRUGS (2)
  1. OPDIVO [Suspect]
     Active Substance: NIVOLUMAB
     Indication: Metastatic renal cell carcinoma
     Dosage: UNK
     Route: 041
     Dates: start: 202107, end: 202110
  2. INLYTA [Concomitant]
     Active Substance: AXITINIB
     Indication: Metastatic renal cell carcinoma
     Dosage: UNK
     Route: 065
     Dates: start: 202110

REACTIONS (4)
  - Cardiac failure congestive [Recovered/Resolved]
  - Ascites [Recovering/Resolving]
  - Condition aggravated [Recovering/Resolving]
  - Cardiomyopathy [Unknown]

NARRATIVE: CASE EVENT DATE: 20211001
